FAERS Safety Report 4637859-9 (Version None)
Quarter: 2005Q2

REPORT INFORMATION
  Report Type: 
  Country: None (occurrence: None)
  Receive Date: 20050328
  Receipt Date: 20050103
  Transmission Date: 20051028
  Serious: No
  Sender: FDA-Public Use
  Company Number: USA050187260

PATIENT
  Age: 49 Year
  Sex: Male
  Weight: 111 kg

DRUGS (3)
  1. STRATTERA [Suspect]
     Indication: ATTENTION DEFICIT/HYPERACTIVITY DISORDER
     Dosage: 80 MG DAY
     Dates: start: 20041229
  2. LISINOPRIL [Concomitant]
  3. RANITIDINE [Concomitant]

REACTIONS (5)
  - CONSTIPATION [None]
  - DYSURIA [None]
  - INSOMNIA [None]
  - SEXUAL DYSFUNCTION [None]
  - URINARY RETENTION [None]
